FAERS Safety Report 24757236 (Version 1)
Quarter: 2024Q4

REPORT INFORMATION
  Report Type: Report from Study
  Country: BE (occurrence: BE)
  Receive Date: 20241220
  Receipt Date: 20241220
  Transmission Date: 20250115
  Serious: Yes (Hospitalization, Other)
  Sender: ASPEN
  Company Number: BE-SA-2024SA016530

PATIENT

DRUGS (42)
  1. DEXAMETHASONE [Suspect]
     Active Substance: DEXAMETHASONE
     Indication: Plasma cell myeloma refractory
     Dosage: 10 MG, QW
     Route: 065
     Dates: start: 20231110, end: 20231110
  2. DEXAMETHASONE [Suspect]
     Active Substance: DEXAMETHASONE
     Dosage: 10 MG, QW
     Route: 065
     Dates: start: 20231201, end: 20231201
  3. DEXAMETHASONE [Suspect]
     Active Substance: DEXAMETHASONE
     Dosage: 10 MG, QW
     Route: 065
     Dates: start: 20231212, end: 20240102
  4. DEXAMETHASONE [Suspect]
     Active Substance: DEXAMETHASONE
     Dosage: 10 MG, QW
     Route: 065
     Dates: start: 20240119, end: 20240209
  5. DEXAMETHASONE [Suspect]
     Active Substance: DEXAMETHASONE
     Dosage: 4 MG, QW
     Route: 065
     Dates: start: 20240216, end: 20240308
  6. ISATUXIMAB [Suspect]
     Active Substance: ISATUXIMAB
     Indication: Plasma cell myeloma refractory
     Dosage: 850 MILLIGRAM, 1 DOSE WEEKLY (850 MG, QW)
     Route: 065
     Dates: start: 20231110, end: 20231123
  7. ISATUXIMAB [Suspect]
     Active Substance: ISATUXIMAB
     Dosage: 870 MILLIGRAM, 1 DOSE WEEKLY (870 MG, QW)
     Route: 065
     Dates: start: 20231124, end: 20231130
  8. ISATUXIMAB [Suspect]
     Active Substance: ISATUXIMAB
     Dosage: 850 MILLIGRAM, 1 DOSE WEEKLY (850 MG, QW)
     Route: 065
     Dates: start: 20231201, end: 20231201
  9. ISATUXIMAB [Suspect]
     Active Substance: ISATUXIMAB
     Dosage: 830 MILLIGRAM, 2 DOSE WEEKLY (830 MG, BIW)
     Route: 065
     Dates: start: 20231212, end: 20231226
  10. ISATUXIMAB [Suspect]
     Active Substance: ISATUXIMAB
     Dosage: 770 MILLIGRAM, 2 DOSE WEEKLY (770 MG, BIW)
     Route: 065
     Dates: start: 20240119, end: 20240209
  11. ISATUXIMAB [Suspect]
     Active Substance: ISATUXIMAB
     Dosage: 800 MILLIGRAM, 2 DOSE WEEKLY (800 MG, BIW)
     Route: 065
     Dates: start: 20240216, end: 20240308
  12. ISATUXIMAB [Suspect]
     Active Substance: ISATUXIMAB
     Dosage: 800 MILLIGRAM, 2 DOSE WEEKLY (800 MG, BIW)
     Route: 065
     Dates: start: 20240315, end: 20240404
  13. ISATUXIMAB [Suspect]
     Active Substance: ISATUXIMAB
     Dosage: 800 MILLIGRAM, 2 DOSE WEEKLY (800 MG, BIW)
     Route: 065
     Dates: start: 20240412, end: 20240502
  14. ISATUXIMAB [Suspect]
     Active Substance: ISATUXIMAB
     Dosage: 800 MILLIGRAM, 1 DOSE MONTHLY
     Route: 065
     Dates: start: 20240507, end: 20240527
  15. ISATUXIMAB [Suspect]
     Active Substance: ISATUXIMAB
     Dosage: 800 MILLIGRAM, 1 DOSE MONTHLY
     Route: 065
     Dates: start: 20240604, end: 20240624
  16. POMALIDOMIDE [Suspect]
     Active Substance: POMALIDOMIDE
     Indication: Plasma cell myeloma refractory
     Dosage: 3 MG, QD
     Route: 065
     Dates: start: 20231110, end: 20231110
  17. POMALIDOMIDE [Suspect]
     Active Substance: POMALIDOMIDE
     Dosage: 3 MG, QD
     Route: 065
     Dates: start: 20231201, end: 20231201
  18. POMALIDOMIDE [Suspect]
     Active Substance: POMALIDOMIDE
     Dosage: 3 MG, QD
     Route: 065
     Dates: start: 20231212, end: 20240102
  19. POMALIDOMIDE [Suspect]
     Active Substance: POMALIDOMIDE
     Dosage: 3 MG, QD
     Route: 065
     Dates: start: 20240119
  20. POMALIDOMIDE [Suspect]
     Active Substance: POMALIDOMIDE
     Dosage: 2 MG, QD
     Route: 065
     Dates: start: 20240216, end: 20240308
  21. POMALIDOMIDE [Suspect]
     Active Substance: POMALIDOMIDE
     Dosage: 2 MG, QD
     Route: 065
     Dates: start: 20240315, end: 20240404
  22. POMALIDOMIDE [Suspect]
     Active Substance: POMALIDOMIDE
     Dosage: 2 MG, QD
     Route: 065
     Dates: start: 20240412, end: 20240502
  23. POMALIDOMIDE [Suspect]
     Active Substance: POMALIDOMIDE
     Dosage: 2 MG, QD
     Route: 065
     Dates: start: 20240502, end: 20240527
  24. POMALIDOMIDE [Suspect]
     Active Substance: POMALIDOMIDE
     Dosage: 2 MG, QD
     Route: 065
     Dates: start: 20240604, end: 20240624
  25. Pantomed [Concomitant]
     Indication: Prophylaxis
     Dosage: UNK
     Route: 065
     Dates: start: 20191107
  26. CALCIUM [Concomitant]
     Active Substance: CALCIUM
     Indication: Prophylaxis
     Dosage: UNK
     Route: 065
     Dates: start: 20191107
  27. CHOLECALCIFEROL [Concomitant]
     Active Substance: CHOLECALCIFEROL
     Indication: Prophylaxis
     Dosage: UNK
     Route: 065
     Dates: start: 20191107
  28. ASPIRIN [Concomitant]
     Active Substance: ASPIRIN
     Indication: Cerebrovascular accident
     Dosage: UNK
     Route: 065
     Dates: start: 2019
  29. ASPIRIN [Concomitant]
     Active Substance: ASPIRIN
     Indication: Prophylaxis
  30. NEBIVOLOL [Concomitant]
     Active Substance: NEBIVOLOL
     Indication: Hypertension
     Dosage: UNK
     Route: 065
     Dates: start: 2019
  31. TAMSULOSIN HYDROCHLORIDE [Concomitant]
     Active Substance: TAMSULOSIN HYDROCHLORIDE
     Indication: Benign prostatic hyperplasia
     Dosage: UNK
     Route: 065
     Dates: start: 201910
  32. ALLOPURINOL [Concomitant]
     Active Substance: ALLOPURINOL
     Indication: Gout
     Dosage: UNK
     Route: 065
     Dates: start: 20191107
  33. PERINDOPRIL [Concomitant]
     Active Substance: PERINDOPRIL
     Indication: Hypertension
     Dosage: UNK
     Route: 065
     Dates: start: 20201209
  34. ACYCLOVIR [Concomitant]
     Active Substance: ACYCLOVIR
     Indication: Prophylaxis
     Dosage: UNK
     Route: 065
     Dates: start: 20220805
  35. ENOXAPARIN SODIUM [Concomitant]
     Active Substance: ENOXAPARIN SODIUM
     Indication: Peripheral venous disease
     Dosage: UNK
     Route: 065
     Dates: start: 20191023, end: 20240216
  36. ZALDIAR [Concomitant]
     Active Substance: ACETAMINOPHEN\TRAMADOL HYDROCHLORIDE
     Indication: Prophylaxis
     Dosage: UNK
     Route: 065
     Dates: start: 20220805
  37. ZALDIAR [Concomitant]
     Active Substance: ACETAMINOPHEN\TRAMADOL HYDROCHLORIDE
     Dosage: UNK
     Route: 065
     Dates: start: 20231212
  38. ACETAMINOPHEN [Concomitant]
     Active Substance: ACETAMINOPHEN
     Indication: Prophylaxis
     Dosage: UNK
     Route: 065
     Dates: start: 20231212
  39. TRAZODONE [Concomitant]
     Active Substance: TRAZODONE HYDROCHLORIDE
     Indication: Prophylaxis
     Dosage: UNK
     Route: 065
     Dates: start: 20231212
  40. ATORVASTATIN [Concomitant]
     Active Substance: ATORVASTATIN
     Indication: Prophylaxis
     Dosage: UNK
     Route: 065
     Dates: start: 20231212
  41. CLOPIDOGREL [Concomitant]
     Active Substance: CLOPIDOGREL BISULFATE
     Indication: Product used for unknown indication
     Dosage: UNK
     Route: 065
     Dates: start: 20231212
  42. PRIVIGEN [Concomitant]
     Active Substance: HUMAN IMMUNOGLOBULIN G
     Indication: Product used for unknown indication
     Dosage: UNK
     Route: 065
     Dates: start: 20240119

REACTIONS (3)
  - Pneumonia [Recovered/Resolved]
  - Pneumonitis [Recovering/Resolving]
  - Bronchitis [Recovered/Resolved]

NARRATIVE: CASE EVENT DATE: 20231211
